FAERS Safety Report 9352980 (Version 3)
Quarter: 2013Q3

REPORT INFORMATION
  Report Type: Report from Study
  Country: BR (occurrence: BR)
  Receive Date: 20130618
  Receipt Date: 20130923
  Transmission Date: 20140515
  Serious: Yes (Other)
  Sender: FDA-Public Use
  Company Number: PHHY2013BR060902

PATIENT
  Age: 84 Year
  Sex: Female

DRUGS (3)
  1. EXELON PATCH [Suspect]
     Indication: MEMORY IMPAIRMENT
     Dosage: 4.6 MG (PATCH 5 CM2), DAILY
     Route: 062
  2. QUETIAPINE [Suspect]
     Dosage: UNK UKN, BID
  3. EXODUS [Concomitant]
     Dosage: UNK UKN, UNK

REACTIONS (6)
  - Parkinson^s disease [Unknown]
  - Screaming [Unknown]
  - Somnolence [Unknown]
  - Drug ineffective [Unknown]
  - Disorientation [Unknown]
  - Agitation [Unknown]
